FAERS Safety Report 17364823 (Version 3)
Quarter: 2021Q2

REPORT INFORMATION
  Report Type: Report from Study
  Country: FR (occurrence: FR)
  Receive Date: 20200204
  Receipt Date: 20210426
  Transmission Date: 20210716
  Serious: Yes (Hospitalization)
  Sender: FDA-Public Use
  Company Number: FR-BRISTOL-MYERS SQUIBB COMPANY-BMS-2020-007664

PATIENT
  Age: 47 Year
  Sex: Female
  Weight: 45.5 kg

DRUGS (2)
  1. CISPLATIN. [Suspect]
     Active Substance: CISPLATIN
     Indication: CERVIX CARCINOMA
     Dosage: 58 MILLIGRAM
     Route: 042
     Dates: start: 20200108, end: 20200122
  2. NIVOLUMAB [Suspect]
     Active Substance: NIVOLUMAB
     Indication: CERVIX CARCINOMA
     Dosage: 240 MILLIGRAM
     Route: 042
     Dates: start: 20200108, end: 20200122

REACTIONS (2)
  - Anaemia [Recovered/Resolved]
  - Pyrexia [Recovered/Resolved]

NARRATIVE: CASE EVENT DATE: 20200123
